FAERS Safety Report 9108372 (Version 1)
Quarter: 2013Q1

REPORT INFORMATION
  Report Type: Spontaneous
  Country: CR (occurrence: CR)
  Receive Date: 20130222
  Receipt Date: 20130222
  Transmission Date: 20140127
  Serious: Yes (Other)
  Sender: FDA-Public Use
  Company Number: PHHY2013CR017653

PATIENT
  Sex: Male

DRUGS (4)
  1. CO-DIOVAN [Suspect]
     Dosage: UNK UKN(320/12.5MG), UNK
  2. FLIXOTIDE [Concomitant]
  3. SALBUTAMOL [Concomitant]
  4. PLAVIX [Concomitant]

REACTIONS (1)
  - Dermatitis exfoliative [Unknown]
